FAERS Safety Report 4970730-1 (Version None)
Quarter: 2006Q2

REPORT INFORMATION
  Report Type: 
  Country: None (occurrence: None)
  Receive Date: 20060411
  Receipt Date: 20060411
  Transmission Date: 20061013
  Serious: Yes (Hospitalization)
  Sender: FDA-Public Use
  Company Number: None

PATIENT
  Age: 54 Year
  Sex: Male
  Weight: 28.8 kg

DRUGS (1)
  1. IMIPENEM [Suspect]
     Indication: URINARY TRACT INFECTION PSEUDOMONAL
     Dosage: 2G, 500 Q6H, INTRAVEN
     Route: 042
     Dates: start: 20060204, end: 20060205

REACTIONS (1)
  - CONVULSION [None]
